FAERS Safety Report 6376888-4 (Version None)
Quarter: 2009Q3

REPORT INFORMATION
  Report Type: 
  Country: None (occurrence: None)
  Receive Date: 20090925
  Receipt Date: 20090506
  Transmission Date: 20100115
  Serious: No
  Sender: FDA-Public Use
  Company Number: US-BAYER-200911027NA

PATIENT
  Sex: Female

DRUGS (2)
  1. OCELLA [Suspect]
     Indication: MENSTRUATION IRREGULAR
     Route: 048
     Dates: start: 20081225, end: 20081230
  2. OCELLA [Suspect]
     Route: 048
     Dates: start: 20090101, end: 20090101

REACTIONS (2)
  - BREAST TENDERNESS [None]
  - PALPITATIONS [None]
